FAERS Safety Report 16919024 (Version 1)
Quarter: 2019Q4

REPORT INFORMATION
  Report Type: Spontaneous
  Country: US (occurrence: US)
  Receive Date: 20191015
  Receipt Date: 20191015
  Transmission Date: 20200122
  Serious: No
  Sender: FDA-Public Use
  Company Number: US-PFIZER INC-2019440801

PATIENT
  Age: 86 Year
  Sex: Female

DRUGS (2)
  1. PREMARIN [Suspect]
     Active Substance: ESTROGENS, CONJUGATED
     Indication: ATROPHIC VULVOVAGINITIS
     Dosage: UNK, CYCLIC [SMALLEST AMOUNT DAILY, 3 WEEKS ON AND ONE WEEK OFF]
     Route: 067
  2. PREMARIN [Suspect]
     Active Substance: ESTROGENS, CONJUGATED
     Indication: VAGINAL INFECTION
     Dosage: UNK, CYCLIC [SMALLEST AMOUNT DAILY, 3 WEEKS ON AND ONE WEEK OFF]
     Dates: start: 20191009

REACTIONS (5)
  - Bacterial infection [Unknown]
  - Cystitis [Unknown]
  - Vaginal infection [Unknown]
  - Product physical consistency issue [Unknown]
  - Poor quality product administered [Unknown]
